FAERS Safety Report 5465843-4 (Version None)
Quarter: 2007Q3

REPORT INFORMATION
  Report Type: 
  Country: None (occurrence: None)
  Receive Date: 20070924
  Receipt Date: 20070917
  Transmission Date: 20080115
  Serious: Yes (Other)
  Sender: FDA-Public Use
  Company Number: PHEH2007US12578

PATIENT
  Sex: Female

DRUGS (4)
  1. METOPROLOL TARTRATE [Suspect]
  2. LISINOPRIL [Concomitant]
  3. PLAVIX [Concomitant]
  4. PRAVACHOL [Concomitant]

REACTIONS (2)
  - CARDIAC DISORDER [None]
  - MYOCARDIAL INFARCTION [None]
